FAERS Safety Report 6914791-9 (Version None)
Quarter: 2010Q3

REPORT INFORMATION
  Report Type: 
  Country: None (occurrence: None)
  Receive Date: 20100809
  Receipt Date: 20100801
  Transmission Date: 20110219
  Serious: Yes (Hospitalization, Other)
  Sender: FDA-Public Use
  Company Number: IL-JNJFOC-20100207821

PATIENT
  Sex: Female

DRUGS (5)
  1. DOXIL [Suspect]
     Indication: MULTIPLE MYELOMA
     Dosage: CYCLE 1
     Route: 065
  2. DOXIL [Suspect]
     Dosage: CYCLE 2
     Route: 065
  3. VELCADE [Suspect]
     Indication: MULTIPLE MYELOMA
     Route: 065
  4. VELCADE [Suspect]
     Route: 065
  5. VELCADE [Suspect]
     Route: 065

REACTIONS (3)
  - COGNITIVE DISORDER [None]
  - DISORIENTATION [None]
  - HYPONATRAEMIA [None]
